FAERS Safety Report 7197152-X (Version None)
Quarter: 2010Q4

REPORT INFORMATION
  Report Type: 
  Country: None (occurrence: None)
  Receive Date: 20101224
  Receipt Date: 20101221
  Transmission Date: 20110411
  Serious: Yes (Death, Hospitalization)
  Sender: FDA-Public Use
  Company Number: PHHO2010RU19405

PATIENT
  Age: 48 Year
  Sex: Male
  Weight: 71.5 kg

DRUGS (8)
  1. DICLOFENAC [Suspect]
     Indication: RHEUMATOID ARTHRITIS
     Dosage: 75 MG, QD
     Route: 030
     Dates: start: 20101008, end: 20101015
  2. NIMESULIDE [Suspect]
     Indication: RHEUMATOID ARTHRITIS
     Dosage: 100 MG, BID
     Route: 048
     Dates: start: 20101008, end: 20101015
  3. METHOTREXATE [Concomitant]
  4. METYPRED [Concomitant]
  5. FOLIC ACID [Concomitant]
  6. MELOXICAM [Concomitant]
  7. RANISAN [Concomitant]
  8. PREDNISOLONE [Concomitant]

REACTIONS (9)
  - ARTHRALGIA [None]
  - BRONCHITIS [None]
  - DISEASE PROGRESSION [None]
  - DUODENAL ULCER HAEMORRHAGE [None]
  - FAECES DISCOLOURED [None]
  - JOINT SWELLING [None]
  - LYMPHADENOPATHY [None]
  - PYREXIA [None]
  - SCAR [None]
